FAERS Safety Report 5401709-3 (Version None)
Quarter: 2007Q3

REPORT INFORMATION
  Report Type: 
  Country: None (occurrence: None)
  Receive Date: 20070731
  Receipt Date: 20070717
  Transmission Date: 20080115
  Serious: Yes (Hospitalization)
  Sender: FDA-Public Use
  Company Number: US-ELI_LILLY_AND_COMPANY-US200603006618

PATIENT
  Age: 69 Year
  Sex: Female
  Weight: 76.643 kg

DRUGS (7)
  1. FORTEO [Suspect]
     Indication: OSTEOPOROSIS
     Dosage: 20 UG, DAILY (1/D)
     Dates: start: 20050712
  2. PREDNISONE [Concomitant]
     Dosage: 10 UNK, DAILY (1/D)
  3. PREDNISONE [Concomitant]
     Dosage: 20 MG, UNK
  4. ALBUTEROL [Concomitant]
  5. ADVAIR DISKUS 100/50 [Concomitant]
     Dosage: 250/50 2/D
  6. THEOPHYLLINE [Concomitant]
  7. LEVOTHYROXINE SODIUM [Concomitant]
     Dosage: 0.05 UNK, DAILY (1/D)

REACTIONS (7)
  - BRONCHITIS [None]
  - DYSPNOEA [None]
  - HEARING IMPAIRED [None]
  - HYPOKALAEMIA [None]
  - NAUSEA [None]
  - PNEUMONIA [None]
  - VOMITING [None]
